FAERS Safety Report 18181735 (Version 3)
Quarter: 2025Q1

REPORT INFORMATION
  Report Type: Report from Study
  Country: PT (occurrence: PT)
  Receive Date: 20200821
  Receipt Date: 20250225
  Transmission Date: 20250409
  Serious: Yes (Other)
  Sender: MYLAN
  Company Number: PT-BIAL-BIAL-07714

PATIENT
  Age: 74 Year
  Sex: Male

DRUGS (24)
  1. RIVASTIGMINE [Suspect]
     Active Substance: RIVASTIGMINE
     Indication: On and off phenomenon
  2. RIVASTIGMINE [Suspect]
     Active Substance: RIVASTIGMINE
     Route: 065
  3. RIVASTIGMINE [Suspect]
     Active Substance: RIVASTIGMINE
     Route: 065
  4. RIVASTIGMINE [Suspect]
     Active Substance: RIVASTIGMINE
  5. ROTIGOTINE [Suspect]
     Active Substance: ROTIGOTINE
     Indication: On and off phenomenon
  6. ROTIGOTINE [Suspect]
     Active Substance: ROTIGOTINE
     Route: 062
  7. ROTIGOTINE [Suspect]
     Active Substance: ROTIGOTINE
     Route: 062
  8. ROTIGOTINE [Suspect]
     Active Substance: ROTIGOTINE
  9. XADAGO [Suspect]
     Active Substance: SAFINAMIDE MESYLATE
     Indication: On and off phenomenon
  10. XADAGO [Suspect]
     Active Substance: SAFINAMIDE MESYLATE
     Route: 065
  11. XADAGO [Suspect]
     Active Substance: SAFINAMIDE MESYLATE
     Route: 065
  12. XADAGO [Suspect]
     Active Substance: SAFINAMIDE MESYLATE
  13. SINEMET [Suspect]
     Active Substance: CARBIDOPA\LEVODOPA
     Indication: On and off phenomenon
  14. SINEMET [Suspect]
     Active Substance: CARBIDOPA\LEVODOPA
     Route: 065
  15. SINEMET [Suspect]
     Active Substance: CARBIDOPA\LEVODOPA
     Route: 065
  16. SINEMET [Suspect]
     Active Substance: CARBIDOPA\LEVODOPA
  17. NEUPRO [Suspect]
     Active Substance: ROTIGOTINE
     Indication: On and off phenomenon
  18. NEUPRO [Suspect]
     Active Substance: ROTIGOTINE
     Route: 065
  19. NEUPRO [Suspect]
     Active Substance: ROTIGOTINE
     Route: 065
  20. NEUPRO [Suspect]
     Active Substance: ROTIGOTINE
  21. ONGENTYS [Suspect]
     Active Substance: OPICAPONE
     Indication: On and off phenomenon
  22. ONGENTYS [Suspect]
     Active Substance: OPICAPONE
     Route: 065
  23. ONGENTYS [Suspect]
     Active Substance: OPICAPONE
     Route: 065
  24. ONGENTYS [Suspect]
     Active Substance: OPICAPONE

REACTIONS (14)
  - Anosmia [Unknown]
  - Delusion [Unknown]
  - Constipation [Unknown]
  - Dysphonia [Unknown]
  - Reduced facial expression [Unknown]
  - Freezing phenomenon [Unknown]
  - Therapeutic response shortened [Unknown]
  - Anxiety [Unknown]
  - Bradykinesia [Unknown]
  - Gait disturbance [Unknown]
  - Hallucination [Unknown]
  - Dementia [Unknown]
  - Tremor [Unknown]
  - Off label use [Unknown]
